FAERS Safety Report 23947984 (Version 1)
Quarter: 2024Q2

REPORT INFORMATION
  Report Type: Report from Study
  Country: DO (occurrence: DO)
  Receive Date: 20240607
  Receipt Date: 20240607
  Transmission Date: 20240716
  Serious: Yes (Other)
  Sender: FDA-Public Use
  Company Number: DO-ABBVIE-5789156

PATIENT
  Sex: Female

DRUGS (9)
  1. HUMIRA [Suspect]
     Active Substance: ADALIMUMAB
     Indication: Rheumatoid arthritis
     Dosage: FORM STRENGTH: 40 MG
     Route: 058
     Dates: start: 20140507, end: 20231025
  2. CARVEDILOL [Concomitant]
     Active Substance: CARVEDILOL
     Indication: Hypertension
     Route: 048
     Dates: start: 20231215
  3. CANDESARTAN CILEXETIL [Concomitant]
     Active Substance: CANDESARTAN CILEXETIL
     Indication: Hypertension
     Dosage: 32MG/25MG EVERY DAY.
     Route: 048
     Dates: end: 20231214
  4. CLOPIDOGREL [Concomitant]
     Active Substance: CLOPIDOGREL BISULFATE
     Indication: Thrombosis prophylaxis
     Route: 048
     Dates: start: 20231215
  5. Jarinu [Concomitant]
     Indication: Diabetes prophylaxis
     Dosage: FORM STRENGTH 10 MILLIGRAM
     Route: 048
     Dates: start: 20231215
  6. LEFLUARTIL [Concomitant]
     Indication: Arthritis
     Dosage: FORM STRENGTH 20 MILLIGRAM
     Route: 048
     Dates: start: 20231215
  7. SACUBITRIL\VALSARTAN [Concomitant]
     Active Substance: SACUBITRIL\VALSARTAN
     Indication: Hypertension
     Dosage: FORM STRENGTH 50 MILLIGRAM
     Route: 048
     Dates: start: 20231215
  8. ROSUVASTATIN [Concomitant]
     Active Substance: ROSUVASTATIN
     Indication: Prophylaxis
     Dosage: FORM STRENGTH 10 MILLIGRAM
     Route: 048
     Dates: start: 20231215
  9. ESPIROLAN [Concomitant]
     Indication: Hypertension
     Route: 048
     Dates: start: 20231215

REACTIONS (5)
  - Cardiac disorder [Recovering/Resolving]
  - Hypertension [Recovering/Resolving]
  - Hypertension [Unknown]
  - Echocardiogram abnormal [Unknown]
  - Atrioventricular block [Unknown]
